FAERS Safety Report 13803577 (Version 1)
Quarter: 2017Q3

REPORT INFORMATION
  Report Type: Spontaneous
  Country: US (occurrence: US)
  Receive Date: 20170728
  Receipt Date: 20170728
  Transmission Date: 20171127
  Serious: No
  Sender: FDA-Public Use
  Company Number: US-TEVA-709029USA

PATIENT
  Age: 75 Year
  Sex: Female
  Weight: 57.2 kg

DRUGS (1)
  1. CARTIA XT [Suspect]
     Active Substance: DILTIAZEM HYDROCHLORIDE
     Route: 065

REACTIONS (9)
  - Hypoaesthesia [Recovered/Resolved]
  - Paraesthesia [Recovered/Resolved]
  - Drug dose omission [Unknown]
  - Hypoaesthesia oral [Recovered/Resolved]
  - Blood pressure increased [Unknown]
  - Syncope [Unknown]
  - Cataract [Unknown]
  - Asthenia [Unknown]
  - Constipation [Unknown]

NARRATIVE: CASE EVENT DATE: 201602
